FAERS Safety Report 8227316-5 (Version None)
Quarter: 2012Q1

REPORT INFORMATION
  Report Type: 
  Country: None (occurrence: None)
  Receive Date: 20120322
  Receipt Date: 20120319
  Transmission Date: 20120608
  Serious: Yes (Death, Other)
  Sender: FDA-Public Use
  Company Number: PHHY2012MX024400

PATIENT
  Sex: Female

DRUGS (2)
  1. GALVUS [Suspect]
     Indication: DIABETES MELLITUS
     Dosage: 50 MG, PER DAY
     Dates: start: 19970101
  2. DIOVAN [Suspect]
     Indication: HYPERTENSION
     Dosage: 320 MG, PER DAY
     Dates: start: 20090810

REACTIONS (8)
  - HAEMATEMESIS [None]
  - RENAL FAILURE CHRONIC [None]
  - VOMITING [None]
  - DIABETIC COMPLICATION [None]
  - DECREASED APPETITE [None]
  - HYPOGLYCAEMIA [None]
  - DIARRHOEA [None]
  - DIARRHOEA HAEMORRHAGIC [None]
